FAERS Safety Report 14972944 (Version 3)
Quarter: 2018Q4

REPORT INFORMATION
  Report Type: Spontaneous
  Country: US (occurrence: US)
  Receive Date: 20180605
  Receipt Date: 20181120
  Transmission Date: 20190204
  Serious: Yes (Other)
  Sender: FDA-Public Use
  Company Number: US-PFIZER INC-2018224751

PATIENT
  Age: 53 Year
  Sex: Female

DRUGS (42)
  1. GABAPENTIN. [Concomitant]
     Active Substance: GABAPENTIN
     Indication: SEIZURE
     Dosage: 1 DF, 3X/DAY
     Route: 048
  2. MELOXICAM. [Concomitant]
     Active Substance: MELOXICAM
     Dosage: 1 DF, 1X/DAY
     Route: 048
  3. NORTRIPTYLINE [Concomitant]
     Active Substance: NORTRIPTYLINE
     Indication: RESTLESS LEGS SYNDROME
     Dosage: 1 DF, NIGHTLY (WEEK 1)
     Route: 048
  4. NORTRIPTYLINE [Concomitant]
     Active Substance: NORTRIPTYLINE
     Dosage: 3 DF, NIGHTLY (WEEK 3)
     Route: 048
  5. TROKENDI XR [Concomitant]
     Active Substance: TOPIRAMATE
     Dosage: 2 DF, DAILY
  6. TROKENDI XR [Concomitant]
     Active Substance: TOPIRAMATE
     Dosage: UNK
     Dates: start: 2014
  7. CYCLOBENZAPRINE. [Concomitant]
     Active Substance: CYCLOBENZAPRINE
     Dosage: UNK
  8. PANTOPRAZOLE SODIUM. [Concomitant]
     Active Substance: PANTOPRAZOLE SODIUM
     Dosage: 1 DF, 1X/DAY (DELAYED RELEASE)
     Route: 048
  9. MUPIROCIN. [Concomitant]
     Active Substance: MUPIROCIN
     Dosage: UNK (TOPICAL OINTMENT)
  10. TROKENDI XR [Concomitant]
     Active Substance: TOPIRAMATE
     Indication: GENERALISED TONIC-CLONIC SEIZURE
     Dosage: 1 DF, 2X/DAY
     Route: 048
  11. KETOCONAZOLE. [Concomitant]
     Active Substance: KETOCONAZOLE
     Dosage: UNK
  12. GABAPENTIN. [Concomitant]
     Active Substance: GABAPENTIN
     Indication: SLEEP DISORDER
  13. TOPAMAX [Concomitant]
     Active Substance: TOPIRAMATE
     Indication: SEIZURE
     Dosage: 2 DF, AT NIGHT
     Route: 048
  14. TOPAMAX [Concomitant]
     Active Substance: TOPIRAMATE
     Dosage: 200 MG, DAILY
     Route: 048
     Dates: end: 20171026
  15. LAMICTAL [Concomitant]
     Active Substance: LAMOTRIGINE
     Dosage: 375 MG, AT BEDTIME
  16. TIZANIDINE. [Concomitant]
     Active Substance: TIZANIDINE
     Dosage: 1 DF, AS NEEDED (EVERY 12 HOURS)
     Route: 048
  17. NORTRIPTYLINE [Concomitant]
     Active Substance: NORTRIPTYLINE
     Dosage: 4 DF, NIGHTLY (WEEK 4)
     Route: 048
  18. DOXYCYCLINE HYCLATE. [Concomitant]
     Active Substance: DOXYCYCLINE HYCLATE
     Dosage: 100 MG, UNK
  19. OMEPRAZOLE. [Concomitant]
     Active Substance: OMEPRAZOLE
     Dosage: 20 MG, 1X/DAY (DELAYED RELEASE)
     Route: 048
  20. LAMICTAL [Concomitant]
     Active Substance: LAMOTRIGINE
     Dosage: 4 DF, EVERY NIGHT
     Route: 048
     Dates: end: 20171026
  21. TOPIRAMATE. [Concomitant]
     Active Substance: TOPIRAMATE
     Dosage: 1 DF, 2X/DAY
     Route: 048
  22. FLUOCINONIDE. [Concomitant]
     Active Substance: FLUOCINONIDE
     Dosage: UNK, (TOPICAL SOLUTION)
  23. KETOCONAZOLE. [Concomitant]
     Active Substance: KETOCONAZOLE
     Dosage: UNK, (TOPICAL CREAM)
  24. CELEBREX [Concomitant]
     Active Substance: CELECOXIB
     Indication: ARTHRITIS
     Dosage: 100 MG, UNK
     Route: 048
  25. SIMVASTATIN. [Concomitant]
     Active Substance: SIMVASTATIN
     Dosage: 40 MG, 2X/DAY
     Route: 048
  26. GABAPENTIN. [Concomitant]
     Active Substance: GABAPENTIN
     Indication: POLYNEUROPATHY
     Dosage: 3 DF, DAILY (AT BEDTIME)
     Route: 048
  27. HYDROCORTISONE. [Concomitant]
     Active Substance: HYDROCORTISONE
     Dosage: UNK, (TOPICAL CREAM)
  28. LAMOTRIGINE EXTENDED RELEASE [Concomitant]
     Active Substance: LAMOTRIGINE
     Indication: GENERALISED TONIC-CLONIC SEIZURE
     Dosage: 2 DF, DAILY
     Route: 048
  29. LAMOTRIGINE. [Concomitant]
     Active Substance: LAMOTRIGINE
     Dosage: 2 DF, 2X/DAY
     Route: 048
  30. LAMOTRIGINE. [Concomitant]
     Active Substance: LAMOTRIGINE
     Dosage: UNK
     Dates: start: 2014
  31. TOPAMAX [Concomitant]
     Active Substance: TOPIRAMATE
     Dosage: 100 MG, 3 EVERY BEDTIME
     Route: 048
     Dates: start: 2006
  32. NORTRIPTYLINE [Concomitant]
     Active Substance: NORTRIPTYLINE
     Indication: HEREDITARY MOTOR AND SENSORY NEUROPATHY
     Dosage: 2 DF, NIGHTLY (WEEK 2)
     Route: 048
  33. CELEBREX [Concomitant]
     Active Substance: CELECOXIB
     Dosage: 2 DF, 2X/DAY
     Route: 048
     Dates: start: 20111121, end: 20171026
  34. LAMOTRIGINE. [Concomitant]
     Active Substance: LAMOTRIGINE
     Indication: SEIZURE
     Dosage: 4 DF, EVERY NIGHT (AT BEDTIME)
     Route: 048
  35. TOPAMAX [Concomitant]
     Active Substance: TOPIRAMATE
     Dosage: 100 MG, DAILY
     Route: 048
     Dates: end: 20120110
  36. LAMICTAL [Concomitant]
     Active Substance: LAMOTRIGINE
     Indication: SEIZURE
     Dosage: 2 DF, 2X/DAY
     Route: 048
  37. ATORVASTATIN CALCIUM. [Concomitant]
     Active Substance: ATORVASTATIN CALCIUM
     Dosage: 1 DF, 1X/DAY
     Route: 048
  38. DILANTIN [Suspect]
     Active Substance: PHENYTOIN
     Indication: SEIZURE
     Dosage: UNK
     Route: 048
  39. GABAPENTIN. [Concomitant]
     Active Substance: GABAPENTIN
     Indication: RESTLESS LEGS SYNDROME
     Dosage: UNK
     Dates: start: 2017
  40. NAPROXEN. [Concomitant]
     Active Substance: NAPROXEN
     Dosage: 1 DF, AS NEEDED (EVERY TWELVE HOURS)
     Route: 048
  41. TOPIRAMATE. [Concomitant]
     Active Substance: TOPIRAMATE
     Dosage: 3 DF, EVERY NIGHT FOR DAYS
  42. TROKENDI XR [Concomitant]
     Active Substance: TOPIRAMATE
     Dosage: 1 DF, DAILY
     Route: 048

REACTIONS (1)
  - Cerebellar atrophy [Not Recovered/Not Resolved]

NARRATIVE: CASE EVENT DATE: 2000
